FAERS Safety Report 9474881 (Version 1)
Quarter: 2013Q3

REPORT INFORMATION
  Report Type: Report from Study
  Country: DE (occurrence: DE)
  Receive Date: 20130823
  Receipt Date: 20130823
  Transmission Date: 20140515
  Serious: Yes (Hospitalization)
  Sender: FDA-Public Use
  Company Number: DE-ROCHE-1264994

PATIENT
  Sex: Female

DRUGS (3)
  1. TOCILIZUMAB [Suspect]
     Indication: RHEUMATOID ARTHRITIS
     Route: 065
     Dates: start: 201005
  2. LEFLUNOMID [Concomitant]
     Dosage: 20 MG AS WELL AS 10 MG
     Route: 065
  3. LEFLUNOMID [Concomitant]
     Route: 065

REACTIONS (2)
  - Osteomyelitis [Unknown]
  - Toe amputation [Unknown]
